FAERS Safety Report 5778062-9 (Version None)
Quarter: 2008Q2

REPORT INFORMATION
  Report Type: 
  Country: None (occurrence: None)
  Receive Date: 20080617
  Receipt Date: 20080617
  Transmission Date: 20081010
  Serious: Yes (Other)
  Sender: FDA-Public Use
  Company Number: None

PATIENT
  Sex: Male
  Weight: 87.3 kg

DRUGS (4)
  1. OXYCONTIN [Suspect]
     Indication: PAIN
     Dosage: 1 TID PO
     Route: 048
     Dates: start: 20080603, end: 20080616
  2. MORPHINE [Suspect]
     Indication: PAIN MANAGEMENT
     Dosage: 1 PRN WITH TXT IV
     Route: 042
     Dates: start: 20080608, end: 20080616
  3. PERCOCET [Concomitant]
  4. MORPHINE [Concomitant]

REACTIONS (3)
  - DRUG DOSE OMISSION [None]
  - LETHARGY [None]
  - SEDATION [None]
